FAERS Safety Report 4674323-5 (Version None)
Quarter: 2005Q2

REPORT INFORMATION
  Report Type: 
  Country: None (occurrence: None)
  Receive Date: 20050526
  Receipt Date: 20050519
  Transmission Date: 20051028
  Serious: Yes (Other)
  Sender: FDA-Public Use
  Company Number: US-SOLVAY-00205001683

PATIENT
  Age: 30911 Day
  Sex: Female
  Weight: 56 kg

DRUGS (1)
  1. ROWASA [Suspect]
     Indication: ILL-DEFINED DISORDER
     Dosage: DAILY DOSE: 8 GRAM(S)
     Route: 054
     Dates: start: 20050506

REACTIONS (1)
  - SMALL INTESTINAL OBSTRUCTION [None]
